FAERS Safety Report 5953568-8 (Version None)
Quarter: 2008Q4

REPORT INFORMATION
  Report Type: 
  Country: None (occurrence: None)
  Receive Date: 20081114
  Receipt Date: 20081105
  Transmission Date: 20090506
  Serious: Yes (Hospitalization, Congenital Anomaly)
  Sender: FDA-Public Use
  Company Number: A0662926A

PATIENT
  Sex: Male
  Weight: 3.1 kg

DRUGS (5)
  1. PAROXETINE HCL [Suspect]
     Indication: DRUG USE FOR UNKNOWN INDICATION
     Dosage: 30MG PER DAY
  2. PAXIL [Suspect]
     Indication: ANXIETY DISORDER
     Dosage: 20MG PER DAY
     Dates: start: 20030729, end: 20050501
  3. MAGNESIUM SULFATE [Concomitant]
  4. FUROSEMIDE [Concomitant]
     Dates: start: 20031101, end: 20050301
  5. BIRTH CONTROL PILLS [Concomitant]

REACTIONS (11)
  - AREFLEXIA [None]
  - ASTHMA [None]
  - ATRIAL SEPTAL DEFECT [None]
  - BRONCHOSPASM [None]
  - CARDIAC MURMUR [None]
  - COGNITIVE DISORDER [None]
  - CONGENITAL ANOMALY [None]
  - DEVELOPMENTAL DELAY [None]
  - DRUG EXPOSURE DURING PREGNANCY [None]
  - SPEECH DISORDER DEVELOPMENTAL [None]
  - TACHYPNOEA [None]
